FAERS Safety Report 18106457 (Version 2)
Quarter: 2020Q3

REPORT INFORMATION
  Report Type: Report from Study
  Country: US (occurrence: US)
  Receive Date: 20200804
  Receipt Date: 20200814
  Transmission Date: 20201103
  Serious: Yes (Hospitalization, Other)
  Sender: FDA-Public Use
  Company Number: US-GLAXOSMITHKLINE-US2020AMR118370

PATIENT
  Sex: Female

DRUGS (2)
  1. NIRAPARIB [Suspect]
     Active Substance: NIRAPARIB
     Indication: RETROPERITONEAL CANCER
     Dosage: 200 MG, QD
     Dates: start: 20200626
  2. NIRAPARIB [Suspect]
     Active Substance: NIRAPARIB
     Indication: OVARIAN CANCER

REACTIONS (13)
  - Blood urea abnormal [Unknown]
  - Off label use [Unknown]
  - Fluid intake reduced [Not Recovered/Not Resolved]
  - Dizziness [Unknown]
  - Balance disorder [Unknown]
  - Decreased appetite [Recovering/Resolving]
  - Product dose omission issue [Unknown]
  - Headache [Recovered/Resolved]
  - Constipation [Not Recovered/Not Resolved]
  - Nausea [Recovered/Resolved]
  - Weight decreased [Unknown]
  - Intestinal obstruction [Unknown]
  - Insomnia [Not Recovered/Not Resolved]
